FAERS Safety Report 6348921-7 (Version None)
Quarter: 2009Q3

REPORT INFORMATION
  Report Type: 
  Country: None (occurrence: None)
  Receive Date: 20090911
  Receipt Date: 20090902
  Transmission Date: 20100115
  Serious: Yes (Other)
  Sender: FDA-Public Use
  Company Number: US-PFIZER INC-2009263702

PATIENT
  Sex: Female
  Weight: 69 kg

DRUGS (12)
  1. ADRIAMYCIN PFS [Suspect]
     Indication: BREAST CANCER
     Dosage: ONE TIME EVERY THREE WEEKS
     Route: 042
     Dates: start: 20090618, end: 20090618
  2. CYCLOPHOSPHAMIDE [Suspect]
     Indication: BREAST CANCER
     Dosage: EVERY THREE WEEKS
     Route: 042
     Dates: start: 20090618, end: 20090618
  3. TAXOTERE [Suspect]
     Indication: BREAST CANCER
     Dosage: 75 MG/M2 (130 MG), EVERY 3 WEEKS
     Route: 042
     Dates: start: 20090618, end: 20090618
  4. DEXAMETHASONE [Concomitant]
     Dosage: UNK
     Dates: start: 20090618
  5. LEVAQUIN [Concomitant]
     Dosage: UNK
     Dates: start: 20090618
  6. LORAZEPAM [Concomitant]
     Dosage: UNK
     Dates: start: 20081107
  7. MOUTHWASH [Concomitant]
     Dosage: UNK
     Dates: start: 20090619
  8. MYCELEX [Concomitant]
     Dosage: UNK
     Dates: start: 20090619
  9. PHENERGAN [Concomitant]
     Dosage: UNK
     Dates: start: 20090618
  10. VICODIN [Concomitant]
     Dosage: UNK
     Dates: start: 20081107
  11. ZOFRAN [Concomitant]
     Dosage: UNK
     Dates: start: 20090618
  12. EMEND [Concomitant]
     Dosage: UNK
     Dates: start: 20090618

REACTIONS (5)
  - CANDIDIASIS [None]
  - DIARRHOEA [None]
  - FEBRILE NEUTROPENIA [None]
  - MUCOSAL INFLAMMATION [None]
  - PANCYTOPENIA [None]
